FAERS Safety Report 14094968 (Version 2)
Quarter: 2017Q4

REPORT INFORMATION
  Report Type: Spontaneous
  Country: JP (occurrence: JP)
  Receive Date: 20171016
  Receipt Date: 20171025
  Transmission Date: 20180321
  Serious: Yes (Hospitalization, Other)
  Sender: FDA-Public Use
  Company Number: JP-009507513-1708JPN002762J

PATIENT
  Age: 59 Year
  Sex: Male

DRUGS (10)
  1. JANUVIA [Suspect]
     Active Substance: SITAGLIPTIN PHOSPHATE
     Dosage: 50 MG, QD
     Route: 048
     Dates: start: 20170803, end: 201710
  2. CELECOX [Concomitant]
     Active Substance: CELECOXIB
     Dosage: 200 MG, BID
     Route: 048
  3. SENNOSIDE [Concomitant]
     Active Substance: SENNOSIDES
     Dosage: 24 MG, QD
     Route: 048
  4. KINEDAK [Concomitant]
     Active Substance: EPALRESTAT
     Dosage: 150 MG, TID
     Route: 048
  5. OLMETEC [Concomitant]
     Active Substance: OLMESARTAN MEDOXOMIL
     Dosage: 20 MG, QD
     Route: 048
  6. LUPRAC [Concomitant]
     Active Substance: TORSEMIDE
     Dosage: 8 MG, QD
     Route: 048
  7. PROMAC [Concomitant]
     Active Substance: NITROFURANTOIN
     Dosage: 150 MG, BID
     Route: 048
  8. ALDACTONE A [Concomitant]
     Active Substance: SPIRONOLACTONE
     Dosage: 50 MG, BID
     Route: 048
  9. NORVASC [Concomitant]
     Active Substance: AMLODIPINE BESYLATE
     Dosage: 10 MG, QD
     Route: 048
  10. MAGMITT [Concomitant]
     Active Substance: MAGNESIUM OXIDE
     Dosage: 990 MG, TID
     Route: 048

REACTIONS (2)
  - Blood potassium decreased [Recovering/Resolving]
  - Metastases to bladder [Unknown]

NARRATIVE: CASE EVENT DATE: 20170823
